FAERS Safety Report 19605226 (Version 1)
Quarter: 2021Q3

REPORT INFORMATION
  Report Type: Report from Study
  Country: US (occurrence: US)
  Receive Date: 20210723
  Receipt Date: 20210723
  Transmission Date: 20211014
  Serious: Yes (Hospitalization, Other)
  Sender: FDA-Public Use
  Company Number: US-SHIRE-US202030770

PATIENT
  Age: 54 Year
  Sex: Female

DRUGS (1)
  1. HUMAN NORMAL IMMUNOGLOBULIN; LIQUID [Suspect]
     Active Substance: HUMAN IMMUNOGLOBULIN G
     Indication: IMMUNODEFICIENCY COMMON VARIABLE
     Dosage: 25 GRAM, Q3WEEKS
     Route: 065

REACTIONS (6)
  - Sleep disorder [Unknown]
  - Hip arthroplasty [Unknown]
  - Pain in jaw [Unknown]
  - Muscle disorder [Unknown]
  - Myasthenia gravis [Unknown]
  - Dysphagia [Unknown]

NARRATIVE: CASE EVENT DATE: 20200902
